FAERS Safety Report 5608663-X (Version None)
Quarter: 2008Q1

REPORT INFORMATION
  Report Type: 
  Country: None (occurrence: None)
  Receive Date: 20080131
  Receipt Date: 20080122
  Transmission Date: 20080703
  Serious: Yes (Hospitalization, Other)
  Sender: FDA-Public Use
  Company Number: US-PFIZER INC-2008006533

PATIENT
  Sex: Female
  Weight: 104.3 kg

DRUGS (5)
  1. SOLU-MEDROL [Suspect]
     Indication: MULTIPLE SCLEROSIS
     Route: 042
     Dates: start: 20070101, end: 20071201
  2. SOLU-MEDROL [Suspect]
     Dosage: FREQ:FREQUENCY: ONCE
     Route: 042
     Dates: start: 20071201, end: 20071201
  3. SOLU-MEDROL [Suspect]
     Route: 042
     Dates: start: 20071201, end: 20071201
  4. PREDNISONE TAB [Suspect]
     Indication: MULTIPLE SCLEROSIS RELAPSE
     Dates: start: 20071201, end: 20071201
  5. REBIF [Suspect]
     Indication: MULTIPLE SCLEROSIS
     Dosage: DAILY DOSE:44MCG
     Route: 058

REACTIONS (6)
  - CUSHING'S SYNDROME [None]
  - INFLUENZA LIKE ILLNESS [None]
  - INJECTION SITE REACTION [None]
  - MENOPAUSE [None]
  - MULTIPLE SCLEROSIS RELAPSE [None]
  - PAIN [None]
